FAERS Safety Report 11747575 (Version 1)
Quarter: 2015Q4

REPORT INFORMATION
  Report Type: Spontaneous
  Country: US (occurrence: US)
  Receive Date: 20151117
  Receipt Date: 20151117
  Transmission Date: 20160304
  Serious: Yes (Other)
  Sender: FDA-Public Use
  Company Number: US-SHIRE-US201513998

PATIENT
  Age: 65 Year
  Sex: Male
  Weight: 94.79 kg

DRUGS (2)
  1. LIALDA [Suspect]
     Active Substance: MESALAMINE
     Indication: COLITIS
     Dosage: 2.4 G (2 TABLETS), 1X/DAY:QD
     Route: 048
     Dates: start: 2013, end: 201511
  2. LIALDA [Suspect]
     Active Substance: MESALAMINE
     Dosage: 4.8 G (4 TABLETS), 1X/DAY:QD
     Route: 048
     Dates: start: 201511

REACTIONS (1)
  - Colitis [Recovering/Resolving]

NARRATIVE: CASE EVENT DATE: 20151020
